FAERS Safety Report 7957058-2 (Version None)
Quarter: 2011Q4

REPORT INFORMATION
  Report Type: 
  Country: None (occurrence: None)
  Receive Date: 20111205
  Receipt Date: 20111128
  Transmission Date: 20120403
  Serious: Yes (Hospitalization)
  Sender: FDA-Public Use
  Company Number: VE-ROCHE-1018286

PATIENT
  Sex: Female

DRUGS (5)
  1. LAMOTRIGINE [Concomitant]
  2. OMALIZUMAB [Suspect]
  3. SYMBICORT [Concomitant]
  4. OMALIZUMAB [Suspect]
     Indication: PRODUCT USED FOR UNKNOWN INDICATION
     Route: 065
     Dates: start: 20110901, end: 20111129
  5. TOPIRAMATE [Concomitant]

REACTIONS (1)
  - CONVULSION [None]
